FAERS Safety Report 16331623 (Version 1)
Quarter: 2019Q2

REPORT INFORMATION
  Report Type: Spontaneous
  Country: US (occurrence: US)
  Receive Date: 20190412
  Receipt Date: 20190412
  Transmission Date: 20190711
  Serious: No
  Sender: FDA-Public Use
  Company Number: None

PATIENT
  Age: 41 Year
  Sex: Female

DRUGS (1)
  1. GAMMAGARD LIQUID [Suspect]
     Active Substance: HUMAN IMMUNOGLOBULIN G
     Indication: MULTIPLE SCLEROSIS
     Dosage: ?          OTHER FREQUENCY:2 DAYS EVERY 5 WEE;?
     Route: 042
     Dates: start: 20170510

REACTIONS (4)
  - Pallor [None]
  - Tremor [None]
  - Oxygen saturation decreased [None]
  - Body temperature increased [None]

NARRATIVE: CASE EVENT DATE: 20190401
